FAERS Safety Report 7552419-8 (Version None)
Quarter: 2011Q2

REPORT INFORMATION
  Report Type: 
  Country: None (occurrence: None)
  Receive Date: 20110616
  Receipt Date: 20110614
  Transmission Date: 20111010
  Serious: Yes (Other)
  Sender: FDA-Public Use
  Company Number: GR-PFIZER INC-2011129903

PATIENT
  Age: 17 Year
  Sex: Female

DRUGS (1)
  1. SOLU-CORTEF [Suspect]
     Indication: ARTHROPOD STING
     Dosage: UNK

REACTIONS (3)
  - LIP OEDEMA [None]
  - EYE OEDEMA [None]
  - FACE OEDEMA [None]
